FAERS Safety Report 15778610 (Version 2)
Quarter: 2019Q2

REPORT INFORMATION
  Report Type: Report from Study
  Country: US (occurrence: US)
  Receive Date: 20181231
  Receipt Date: 20190528
  Transmission Date: 20190711
  Serious: Yes (Hospitalization)
  Sender: FDA-Public Use
  Company Number: US-ACTELION-A-US2018-183106

PATIENT
  Age: 65 Year
  Sex: Female

DRUGS (3)
  1. LETAIRIS [Concomitant]
     Active Substance: AMBRISENTAN
  2. SILDENAFIL. [Concomitant]
     Active Substance: SILDENAFIL
     Indication: PULMONARY ARTERIAL HYPERTENSION
  3. UPTRAVI [Suspect]
     Active Substance: SELEXIPAG
     Indication: PULMONARY ARTERIAL HYPERTENSION
     Dosage: 400 MCG, BID
     Route: 048
     Dates: start: 20170323

REACTIONS (8)
  - Anaemia [Unknown]
  - Haemoglobin decreased [Unknown]
  - Asthenia [Unknown]
  - Condition aggravated [Unknown]
  - Fatigue [Unknown]
  - Therapy non-responder [Unknown]
  - Hospitalisation [Unknown]
  - Transfusion [Unknown]

NARRATIVE: CASE EVENT DATE: 20190310
